FAERS Safety Report 5499783-1 (Version None)
Quarter: 2007Q4

REPORT INFORMATION
  Report Type: 
  Country: None (occurrence: None)
  Receive Date: 20071026
  Receipt Date: 20071017
  Transmission Date: 20080405
  Serious: Yes (Death, Other)
  Sender: FDA-Public Use
  Company Number: CH-ROCHE-525778

PATIENT
  Age: 58 Year
  Sex: Male

DRUGS (6)
  1. CAPECITABINE [Suspect]
     Indication: PANCREATIC CARCINOMA
     Route: 065
     Dates: start: 20070803, end: 20071004
  2. GEMCITABINE HCL [Suspect]
     Indication: PANCREATIC CARCINOMA
     Route: 065
     Dates: start: 20070803, end: 20071004
  3. OXALIPLATIN [Suspect]
     Indication: PANCREATIC CARCINOMA
     Route: 065
     Dates: start: 20070803, end: 20071004
  4. ASPIRIN [Concomitant]
     Dosage: TDD: 100
     Route: 048
  5. 1 CONCOMITANT DRUG [Concomitant]
     Dosage: TTD: 25,000
     Route: 048
  6. 1 CONCOMITANT DRUG [Concomitant]

REACTIONS (3)
  - DIARRHOEA [None]
  - HEPATORENAL SYNDROME [None]
  - SEPSIS [None]
